FAERS Safety Report 9564178 (Version 1)
Quarter: 2013Q3

REPORT INFORMATION
  Report Type: Spontaneous
  Country: US (occurrence: US)
  Receive Date: 20130930
  Receipt Date: 20130930
  Transmission Date: 20140515
  Serious: Yes (Life-Threatening, Hospitalization, Other)
  Sender: FDA-Public Use
  Company Number: US-JNJFOC-20130914756

PATIENT
  Age: 24 Year
  Sex: Female

DRUGS (1)
  1. TYLENOL PM [Suspect]
     Indication: SUICIDE ATTEMPT
     Dosage: 100 TABLETS OVER A 2-DAY PERIOD
     Route: 048

REACTIONS (5)
  - Suicide attempt [Unknown]
  - Basedow^s disease [Unknown]
  - Anxiety [Unknown]
  - Overdose [Unknown]
  - Hepatic encephalopathy [Unknown]
